FAERS Safety Report 7829370-9 (Version None)
Quarter: 2011Q4

REPORT INFORMATION
  Report Type: 
  Country: None (occurrence: None)
  Receive Date: 20111020
  Receipt Date: 20111014
  Transmission Date: 20120403
  Serious: Yes (Death)
  Sender: FDA-Public Use
  Company Number: US-GILEAD-2011-0043076

PATIENT

DRUGS (1)
  1. LETAIRIS [Suspect]
     Route: 048
     Dates: start: 20110615, end: 20110815

REACTIONS (1)
  - CARDIAC ARREST [None]
